FAERS Safety Report 15955070 (Version 1)
Quarter: 2019Q1

REPORT INFORMATION
  Report Type: Spontaneous
  Country: US (occurrence: US)
  Receive Date: 20190213
  Receipt Date: 20190213
  Transmission Date: 20190417
  Serious: No
  Sender: FDA-Public Use
  Company Number: US-PFIZER INC-2019057527

PATIENT
  Age: 70 Year
  Sex: Female
  Weight: 68.4 kg

DRUGS (4)
  1. ESTRING [Suspect]
     Active Substance: ESTRADIOL
     Indication: POLLAKIURIA
  2. ESTRING [Suspect]
     Active Substance: ESTRADIOL
     Indication: AUTOMATIC BLADDER
     Dosage: UNK
     Route: 067
  3. CYCLOBENZAPRINE. [Concomitant]
     Active Substance: CYCLOBENZAPRINE
     Indication: NECK INJURY
     Dosage: 10 MG, 1X/DAY
     Route: 048
     Dates: start: 1999
  4. SYNTHROID [Concomitant]
     Active Substance: LEVOTHYROXINE SODIUM
     Indication: HYPOTHYROIDISM
     Dosage: UNK
     Dates: start: 1999

REACTIONS (1)
  - Drug ineffective for unapproved indication [Unknown]
